FAERS Safety Report 8793732 (Version 3)
Quarter: 2012Q4

REPORT INFORMATION
  Report Type: Report from Study
  Country: JP (occurrence: JP)
  Receive Date: 20120918
  Receipt Date: 20121101
  Transmission Date: 20130627
  Serious: Yes (Hospitalization)
  Sender: FDA-Public Use
  Company Number: JP-CELGENEUS-087-50794-12091363

PATIENT
  Age: 78 Year
  Sex: Female
  Weight: 60 kg

DRUGS (16)
  1. VIDAZA [Suspect]
     Indication: MYELODYSPLASTIC SYNDROME
     Dosage: 75 milligram/sq. meter
     Route: 058
     Dates: start: 20120507, end: 20120509
  2. VIDAZA [Suspect]
     Dosage: 37.5 milligram/sq. meter
     Route: 058
     Dates: start: 20120618, end: 20120624
  3. ITRIZOLE [Concomitant]
     Indication: DRUG USE FOR UNKNOWN INDICATION
     Route: 065
     Dates: start: 20120404, end: 20120626
  4. ACINON [Concomitant]
     Indication: DRUG USE FOR UNKNOWN INDICATION
     Route: 065
     Dates: start: 20120420, end: 20120626
  5. POLYMIXIN B SULFATE [Concomitant]
     Indication: DRUG USE FOR UNKNOWN INDICATION
     Route: 065
     Dates: start: 20120420, end: 20120626
  6. CALONAL [Concomitant]
     Indication: DRUG USE FOR UNKNOWN INDICATION
     Route: 065
     Dates: start: 20120511, end: 20120626
  7. SOLU-CORTEF [Concomitant]
     Indication: DRUG USE FOR UNKNOWN INDICATION
     Route: 065
     Dates: start: 20120427, end: 20120630
  8. KYTRIL [Concomitant]
     Indication: DRUG USE FOR UNKNOWN INDICATION
     Route: 065
     Dates: start: 20120618, end: 20120624
  9. FINIBAX [Concomitant]
     Indication: DRUG USE FOR UNKNOWN INDICATION
     Route: 065
     Dates: start: 20120511, end: 20120523
  10. FINIBAX [Concomitant]
     Route: 065
     Dates: start: 20120627, end: 20120630
  11. MEROPEN [Concomitant]
     Indication: DRUG USE FOR UNKNOWN INDICATION
     Route: 065
     Dates: start: 20120524, end: 20120606
  12. MEROPEN [Concomitant]
     Route: 065
     Dates: start: 20120613, end: 20120627
  13. SULPERAZON [Concomitant]
     Indication: DRUG USE FOR UNKNOWN INDICATION
     Route: 065
     Dates: start: 20120607, end: 20120613
  14. AMIKACIN SULFATE [Concomitant]
     Indication: DRUG USE FOR UNKNOWN INDICATION
     Route: 065
     Dates: start: 20120621, end: 20120630
  15. AMBISOME [Concomitant]
     Indication: DRUG USE FOR UNKNOWN INDICATION
     Route: 065
     Dates: start: 20120627, end: 20120630
  16. VENOGLOBULIN-IH [Concomitant]
     Indication: DRUG USE FOR UNKNOWN INDICATION
     Route: 065
     Dates: start: 20120625, end: 20120627

REACTIONS (2)
  - Pyrexia [Unknown]
  - Infection [Unknown]
